FAERS Safety Report 19706323 (Version 2)
Quarter: 2021Q3

REPORT INFORMATION
  Report Type: Spontaneous
  Country: US (occurrence: US)
  Receive Date: 20210817
  Receipt Date: 20210827
  Transmission Date: 20211014
  Serious: Yes (Hospitalization, Other)
  Sender: FDA-Public Use
  Company Number: US-AMGEN-USASP2021122856

PATIENT
  Age: 72 Year
  Sex: Female
  Weight: 69.84 kg

DRUGS (1)
  1. AIMOVIG [Suspect]
     Active Substance: ERENUMAB-AOOE
     Indication: MIGRAINE
     Dosage: 140 MILLIGRAM, QMO
     Route: 065
     Dates: start: 20210413

REACTIONS (9)
  - Drug dose omission by device [Unknown]
  - COVID-19 [Unknown]
  - Pain [Unknown]
  - Injection site indentation [Unknown]
  - Fall [Unknown]
  - Balance disorder [Unknown]
  - Diarrhoea [Unknown]
  - Wrong technique in product usage process [Unknown]
  - Accidental exposure to product [Unknown]

NARRATIVE: CASE EVENT DATE: 2021
